FAERS Safety Report 5079911-2 (Version None)
Quarter: 2006Q3

REPORT INFORMATION
  Report Type: 
  Country: None (occurrence: None)
  Receive Date: 20060815
  Receipt Date: 20060614
  Transmission Date: 20061208
  Serious: Yes (Other)
  Sender: FDA-Public Use
  Company Number: US-AMGEN-STX183391

PATIENT
  Sex: Female
  Weight: 109 kg

DRUGS (12)
  1. ENBREL [Suspect]
     Indication: PSORIATIC ARTHROPATHY
     Route: 058
     Dates: start: 20010803, end: 20060523
  2. METHOTREXATE [Concomitant]
     Dates: end: 20060525
  3. ACETAMINOPHEN [Concomitant]
  4. ASPIRIN [Concomitant]
  5. FOLIC ACID [Concomitant]
  6. QUININE SULFATE [Concomitant]
  7. MAXZIDE [Concomitant]
  8. POTASSIUM CHLORIDE [Concomitant]
  9. SYNTHROID [Concomitant]
  10. PRILOSEC [Concomitant]
  11. CYTOMEL [Concomitant]
  12. PROZAC [Concomitant]

REACTIONS (5)
  - ADRENAL MASS [None]
  - INTERVERTEBRAL DISC DEGENERATION [None]
  - LUNG NEOPLASM MALIGNANT [None]
  - SMALL CELL LUNG CANCER STAGE UNSPECIFIED [None]
  - THYROID NEOPLASM [None]
